FAERS Safety Report 8823477 (Version 1)
Quarter: 2012Q4

REPORT INFORMATION
  Report Type: 
  Country: US (occurrence: US)
  Receive Date: 20121003
  Receipt Date: 20121003
  Transmission Date: 20130627
  Serious: Yes (Congenital Anomaly)
  Sender: FDA-Public Use
  Company Number: US-SHIRE-ALL1-2012-04588

PATIENT

DRUGS (2)
  1. CARBAMAZEPINE [Suspect]
     Indication: PRODUCT USED FOR UNKNOWN INDICATION
     Dosage: 1000 mg, Unknown
     Route: 064
  2. VALPROIC ACID [Suspect]
     Indication: PRODUCT USED FOR UNKNOWN INDICATION
     Dosage: 2500 mg, Unknown
     Route: 064

REACTIONS (2)
  - Meningomyelocele [Unknown]
  - Exposure during pregnancy [Unknown]
